FAERS Safety Report 20156196 (Version 1)
Quarter: 2021Q4

REPORT INFORMATION
  Report Type: Spontaneous
  Country: US (occurrence: None)
  Receive Date: 20211206
  Receipt Date: 20211206
  Transmission Date: 20220303
  Serious: No
  Sender: FDA-Public Use
  Company Number: None

PATIENT
  Age: 35 Year
  Sex: Female
  Weight: 74.25 kg

DRUGS (1)
  1. ACZONE [Suspect]
     Active Substance: DAPSONE
     Indication: Acne
     Route: 061
     Dates: start: 20211201, end: 20211205

REACTIONS (1)
  - Back pain [None]

NARRATIVE: CASE EVENT DATE: 20211202
